FAERS Safety Report 4354917-7 (Version None)
Quarter: 2004Q2

REPORT INFORMATION
  Report Type: 
  Country: None (occurrence: None)
  Receive Date: 20040505
  Receipt Date: 20040419
  Transmission Date: 20050107
  Serious: Yes (Hospitalization, Other)
  Sender: FDA-Public Use
  Company Number: A-US2004-05068

PATIENT
  Age: 7 Month
  Sex: Male

DRUGS (17)
  1. TRACLEER [Suspect]
     Indication: PULMONARY HYPERTENSION
     Dosage: 15 MG, QD, ORAL
     Route: 048
     Dates: start: 20040101, end: 20040101
  2. TRACLEER [Concomitant]
     Indication: PULMONARY HYPERTENSION
     Dosage: 15 MG, BID, ORAL
     Route: 048
     Dates: start: 20040101
  3. TRACLEER [Suspect]
     Indication: PULMONARY HYPERTENSION
     Dosage: 15 MG, QD, ORAL
     Route: 048
     Dates: start: 20040101
  4. TRACLEER [Suspect]
     Indication: PULMONARY HYPERTENSION
     Dosage: 30 MG, BID, ORAL
     Route: 048
     Dates: start: 20040201, end: 20040415
  5. TRACLEER [Suspect]
     Indication: PULMONARY HYPERTENSION
     Dosage: 15 MG, BID, ORAL
     Route: 048
     Dates: start: 20040416, end: 20040418
  6. CHLOROTHIAZIDE [Concomitant]
  7. FUROSEMIDE [Concomitant]
  8. ANZEMET (DOLASETRON MESILATE) [Concomitant]
  9. IRON (IRON) [Concomitant]
  10. GENTAMICIN [Concomitant]
  11. IBUPROFEN [Concomitant]
  12. METHADONE (METHADONE) [Concomitant]
  13. ATIVAN [Concomitant]
  14. PRILOSEC [Concomitant]
  15. PREDNISONE [Concomitant]
  16. SILDENAFIL (SILDENAFIL) [Concomitant]
  17. FLOLAN [Concomitant]

REACTIONS (5)
  - ABDOMINAL PAIN [None]
  - ALANINE AMINOTRANSFERASE INCREASED [None]
  - ASPARTATE AMINOTRANSFERASE INCREASED [None]
  - HAEMATOCHEZIA [None]
  - VOMITING [None]
